FAERS Safety Report 6903834-4 (Version None)
Quarter: 2010Q3

REPORT INFORMATION
  Report Type: 
  Country: None (occurrence: None)
  Receive Date: 20100804
  Receipt Date: 20090123
  Transmission Date: 20110219
  Serious: No
  Sender: FDA-Public Use
  Company Number: US-PFIZER INC-2008090340

PATIENT
  Sex: Male
  Weight: 81.65 kg

DRUGS (4)
  1. LYRICA [Suspect]
     Indication: SPINAL COLUMN STENOSIS
     Dates: start: 20081022, end: 20081023
  2. TOPROL-XL [Concomitant]
  3. DIGITALIS TAB [Concomitant]
  4. CARDIAC THERAPY [Concomitant]

REACTIONS (2)
  - DYSSTASIA [None]
  - MUSCULAR WEAKNESS [None]
